FAERS Safety Report 9717434 (Version 2)
Quarter: 2015Q3

REPORT INFORMATION
  Report Type: Spontaneous
  Country: US (occurrence: US)
  Receive Date: 20131127
  Receipt Date: 20150803
  Transmission Date: 20151125
  Serious: No
  Sender: FDA-Public Use
  Company Number: US-GILEAD-2008-0019667

PATIENT
  Age: 62 Year
  Sex: Female
  Weight: 86.18 kg

DRUGS (10)
  1. TYLENOL WITH CODEINE [Concomitant]
     Active Substance: ACETAMINOPHEN\CODEINE PHOSPHATE
  2. MULTIVITAMIN [Concomitant]
     Active Substance: VITAMINS
  3. LETAIRIS [Suspect]
     Active Substance: AMBRISENTAN
     Indication: PULMONARY ARTERIAL HYPERTENSION
     Route: 048
     Dates: start: 20081117
  4. LASIX [Concomitant]
     Active Substance: FUROSEMIDE
  5. TYLENOL [Concomitant]
     Active Substance: ACETAMINOPHEN
  6. REGLAN [Concomitant]
     Active Substance: METOCLOPRAMIDE HYDROCHLORIDE
  7. NASONEX [Concomitant]
     Active Substance: MOMETASONE FUROATE
  8. CALCIUM [Concomitant]
     Active Substance: CALCIUM
  9. POTASSIUM CHLORIDE. [Concomitant]
     Active Substance: POTASSIUM CHLORIDE
  10. ALBUTEROL. [Concomitant]
     Active Substance: ALBUTEROL

REACTIONS (2)
  - Palpitations [Unknown]
  - Dizziness [Unknown]
